FAERS Safety Report 16529778 (Version 1)
Quarter: 2019Q3

REPORT INFORMATION
  Report Type: Spontaneous
  Country: CA (occurrence: CA)
  Receive Date: 20190704
  Receipt Date: 20190704
  Transmission Date: 20191004
  Serious: Yes (Hospitalization, Other)
  Sender: FDA-Public Use
  Company Number: CA-AUROBINDO-AUR-APL-2019-037111

PATIENT

DRUGS (5)
  1. DUTASTERIDE. [Concomitant]
     Active Substance: DUTASTERIDE
     Indication: PRODUCT USED FOR UNKNOWN INDICATION
     Dosage: UNK
     Route: 065
  2. ROSUVASTATIN. [Concomitant]
     Active Substance: ROSUVASTATIN
     Indication: PRODUCT USED FOR UNKNOWN INDICATION
     Dosage: UNK
     Route: 065
  3. ASA [Concomitant]
     Active Substance: ASPIRIN
     Indication: PRODUCT USED FOR UNKNOWN INDICATION
     Dosage: UNK
     Route: 065
  4. DILTIAZEM HCL [Concomitant]
     Active Substance: DILTIAZEM HYDROCHLORIDE
     Indication: PRODUCT USED FOR UNKNOWN INDICATION
     Dosage: UNK
     Route: 065
  5. OLMESARTAN [Suspect]
     Active Substance: OLMESARTAN
     Indication: HYPERTENSION
     Dosage: 40.0 MILLIGRAM, DAILY
     Route: 048

REACTIONS (20)
  - Clostridium test negative [Recovered/Resolved]
  - Blood creatinine increased [Recovered/Resolved]
  - Blood potassium decreased [Recovered/Resolved]
  - Sleep disorder [Recovered/Resolved]
  - Abdominal pain upper [Recovered/Resolved]
  - Fluid replacement [Recovered/Resolved]
  - Lymphocytosis [Recovered/Resolved]
  - Gastric mucosa erythema [Recovered/Resolved]
  - Blood urea increased [Recovered/Resolved]
  - Anal incontinence [Recovered/Resolved]
  - Intestinal villi atrophy [Recovered/Resolved]
  - Polyp [Recovered/Resolved]
  - Weight decreased [Recovered/Resolved]
  - Coeliac disease [Recovered/Resolved]
  - Nausea [Recovered/Resolved]
  - Vomiting [Recovered/Resolved]
  - Acute kidney injury [Recovered/Resolved]
  - Diarrhoea [Recovered/Resolved]
  - Hiatus hernia [Recovered/Resolved]
  - Parasite stool test negative [Recovered/Resolved]
